FAERS Safety Report 5870571-7 (Version None)
Quarter: 2008Q3

REPORT INFORMATION
  Report Type: 
  Country: None (occurrence: None)
  Receive Date: 20080904
  Receipt Date: 20080827
  Transmission Date: 20090109
  Serious: Yes (Hospitalization)
  Sender: FDA-Public Use
  Company Number: A0717102A

PATIENT
  Age: 48 Year
  Sex: Male
  Weight: 97.5 kg

DRUGS (6)
  1. ROSIGLITAZONE [Suspect]
     Route: 048
     Dates: start: 20060901
  2. PROPRANOLOL [Concomitant]
  3. ACETYLSALICYLIC ACID SRT [Concomitant]
  4. TICLOPIDINE HCL [Concomitant]
  5. CAPTOPRIL [Concomitant]
  6. SIMVASTATIN [Concomitant]

REACTIONS (1)
  - DYSPEPSIA [None]
